FAERS Safety Report 13016978 (Version 1)
Quarter: 2016Q4

REPORT INFORMATION
  Report Type: Spontaneous
  Country: US (occurrence: US)
  Receive Date: 20161209
  Receipt Date: 20161209
  Transmission Date: 20170207
  Serious: Yes (Other)
  Sender: FDA-Public Use
  Company Number: None

PATIENT
  Age: 51 Year
  Sex: Female
  Weight: 105.75 kg

DRUGS (2)
  1. VENLAFAXINE [Suspect]
     Active Substance: VENLAFAXINE HYDROCHLORIDE
     Indication: DEPRESSION
     Dosage: ?          QUANTITY:30 CAPSULE(S);?
     Route: 048
     Dates: start: 20161207, end: 20161208
  2. VENLAFAXINE [Suspect]
     Active Substance: VENLAFAXINE HYDROCHLORIDE
     Indication: MOOD SWINGS
     Dosage: ?          QUANTITY:30 CAPSULE(S);?
     Route: 048
     Dates: start: 20161207, end: 20161208

REACTIONS (9)
  - Dizziness [None]
  - Skin disorder [None]
  - Middle insomnia [None]
  - Vertigo [None]
  - Abdominal discomfort [None]
  - Headache [None]
  - Nausea [None]
  - Impaired work ability [None]
  - Feeding disorder [None]

NARRATIVE: CASE EVENT DATE: 20161208
